FAERS Safety Report 19695576 (Version 1)
Quarter: 2021Q3

REPORT INFORMATION
  Report Type: Spontaneous
  Country: GB (occurrence: GB)
  Receive Date: 20210812
  Receipt Date: 20210812
  Transmission Date: 20211014
  Serious: Yes (Hospitalization)
  Sender: FDA-Public Use
  Company Number: None

PATIENT
  Age: 36 Year
  Sex: Female
  Weight: 96 kg

DRUGS (5)
  1. OMALIZUMAB. [Suspect]
     Active Substance: OMALIZUMAB
     Indication: CHRONIC SPONTANEOUS URTICARIA
     Dosage: ?          OTHER FREQUENCY:MONTHLY;OTHER ROUTE:INJECTED INTO STOMACH?
     Dates: start: 20210616, end: 20210712
  2. QUETIAPINE. [Concomitant]
     Active Substance: QUETIAPINE
  3. MULTIVITAMIN [Concomitant]
     Active Substance: VITAMINS
  4. FEXOFENADINE [Concomitant]
     Active Substance: FEXOFENADINE HYDROCHLORIDE
  5. SERTRALINE [Concomitant]
     Active Substance: SERTRALINE HYDROCHLORIDE

REACTIONS (2)
  - Dizziness [None]
  - Nausea [None]

NARRATIVE: CASE EVENT DATE: 20210812
